FAERS Safety Report 9675725 (Version 2)
Quarter: 2013Q4

REPORT INFORMATION
  Report Type: Report from Study
  Country: US (occurrence: US)
  Receive Date: 20131107
  Receipt Date: 20131120
  Transmission Date: 20140711
  Serious: Yes (Death)
  Sender: FDA-Public Use
  Company Number: US-ACTELION-A-US2013-90713

PATIENT
  Age: 56 Year
  Sex: Female

DRUGS (9)
  1. TRACLEER [Suspect]
     Indication: PULMONARY ARTERIAL HYPERTENSION
     Dosage: 125 MG, BID
     Route: 048
     Dates: start: 20091208
  2. TRACLEER [Suspect]
     Dosage: 62.5 MG, BID
     Route: 048
     Dates: start: 20091108, end: 20091207
  3. ASPIRIN [Concomitant]
  4. HEPARIN [Concomitant]
  5. HYDRALAZINE [Concomitant]
  6. LANTUS [Concomitant]
  7. PROMETHAZINE [Concomitant]
  8. SENSIPAR [Concomitant]
  9. ZEMPLAR [Concomitant]

REACTIONS (1)
  - Death [Fatal]
